FAERS Safety Report 7511723-X (Version None)
Quarter: 2011Q2

REPORT INFORMATION
  Report Type: 
  Country: None (occurrence: None)
  Receive Date: 20110519
  Receipt Date: 20110513
  Transmission Date: 20111010
  Serious: Yes (Hospitalization)
  Sender: FDA-Public Use
  Company Number: ACY-11-06

PATIENT
  Age: 4 Year
  Sex: Female

DRUGS (2)
  1. CYCLOSPORINE [Concomitant]
  2. ACYCLOVIR [Suspect]
     Indication: VARICELLA
     Dosage: IV, 1200MG/M2/DAY
     Route: 042

REACTIONS (2)
  - RENAL FAILURE ACUTE [None]
  - TUBULOINTERSTITIAL NEPHRITIS [None]
